FAERS Safety Report 15450818 (Version 1)
Quarter: 2018Q4

REPORT INFORMATION
  Report Type: Spontaneous
  Country: US (occurrence: US)
  Receive Date: 20181001
  Receipt Date: 20181001
  Transmission Date: 20190204
  Serious: Yes (Other)
  Sender: FDA-Public Use
  Company Number: US-TEVA-2018-US-959683

PATIENT
  Sex: Female
  Weight: 40.82 kg

DRUGS (1)
  1. ACTONEL [Suspect]
     Active Substance: RISEDRONATE SODIUM
     Indication: OSTEOARTHRITIS
     Route: 065

REACTIONS (6)
  - Musculoskeletal disorder [Unknown]
  - Arthropathy [Unknown]
  - Carpal tunnel syndrome [Unknown]
  - Device dislocation [Unknown]
  - Bone disorder [Unknown]
  - Off label use [Unknown]
